FAERS Safety Report 16912709 (Version 3)
Quarter: 2019Q4

REPORT INFORMATION
  Report Type: Report from Study
  Country: CA (occurrence: CA)
  Receive Date: 20191014
  Receipt Date: 20191025
  Transmission Date: 20200122
  Serious: Yes (Hospitalization, Other)
  Sender: FDA-Public Use
  Company Number: CA-AMGEN-CANCT2019170613

PATIENT
  Age: 43 Year
  Sex: Female

DRUGS (14)
  1. SUMATRIPTAN. [Concomitant]
     Active Substance: SUMATRIPTAN
     Indication: NAUSEA
     Dosage: 100 MILLIGRAM, AS NECESSARY (PRN)
     Route: 065
  2. FLUNARIZINE [Concomitant]
     Active Substance: FLUNARIZINE
     Indication: NAUSEA
     Dosage: 5 MILLIGRAM, QD
     Route: 065
  3. ASA [Concomitant]
     Active Substance: ASPIRIN
     Indication: PRODUCT USED FOR UNKNOWN INDICATION
     Dosage: UNK
     Route: 065
  4. AIMOVIG [Suspect]
     Active Substance: ERENUMAB-AOOE
     Dosage: 70 MILLIGRAM, QMO
     Route: 058
     Dates: start: 20190523, end: 20190822
  5. CLONAZEPAM. [Concomitant]
     Active Substance: CLONAZEPAM
     Indication: NAUSEA
     Dosage: 0.5 MILLIGRAM, TID
     Route: 065
  6. TYLENOL [Concomitant]
     Active Substance: ACETAMINOPHEN
     Indication: MIGRAINE
     Dosage: UNK UNK, AS NECESSARY (PRN)
     Route: 065
  7. CYCLOBENZAPRINE. [Concomitant]
     Active Substance: CYCLOBENZAPRINE
     Indication: NECK PAIN
     Dosage: 10 MILLIGRAM, BID, AS NECESSARY
     Route: 065
  8. AIMOVIG [Suspect]
     Active Substance: ERENUMAB-AOOE
     Dosage: 70 MILLIGRAM, QMO
     Route: 058
     Dates: start: 20190623
  9. AIMOVIG [Suspect]
     Active Substance: ERENUMAB-AOOE
     Dosage: 70 MILLIGRAM, QMO
     Route: 058
     Dates: start: 20190723, end: 20190919
  10. ONDASETRON [ONDANSETRON] [Concomitant]
     Indication: NAUSEA
     Dosage: 8 MILLIGRAM, AS NECESSARY (PRN)
     Route: 065
  11. AIMOVIG [Suspect]
     Active Substance: ERENUMAB-AOOE
     Indication: MIGRAINE
     Dosage: 70 MILLIGRAM, QMO
     Route: 058
     Dates: start: 20190423
  12. ESCITALOPRAM [Concomitant]
     Active Substance: ESCITALOPRAM OXALATE
     Indication: NAUSEA
     Dosage: 20 MILLIGRAM, QD
     Route: 065
  13. TRAMACET [Concomitant]
     Active Substance: ACETAMINOPHEN\TRAMADOL
     Indication: MIGRAINE
     Dosage: 1 DOSAGE FORM, AS NECESSARY, (1 DF (37.5/325), (PRN)
     Route: 065
  14. LORAZEPAM. [Concomitant]
     Active Substance: LORAZEPAM
     Indication: PRODUCT USED FOR UNKNOWN INDICATION
     Dosage: UNK
     Route: 065

REACTIONS (24)
  - Lymph node pain [Unknown]
  - Paraesthesia [Recovering/Resolving]
  - Dysarthria [Unknown]
  - Arthralgia [Unknown]
  - Vision blurred [Unknown]
  - Neuralgia [Unknown]
  - Fatigue [Unknown]
  - Migraine [Unknown]
  - Angina pectoris [Recovering/Resolving]
  - Eye pain [Recovering/Resolving]
  - Pain [Recovering/Resolving]
  - Pain in jaw [Recovering/Resolving]
  - Alopecia [Unknown]
  - Depression [Recovering/Resolving]
  - Toothache [Recovering/Resolving]
  - Breast pain [Unknown]
  - Head discomfort [Unknown]
  - Dyspnoea [Recovering/Resolving]
  - Weight decreased [Unknown]
  - Chest pain [Unknown]
  - Oligomenorrhoea [Unknown]
  - Facial pain [Unknown]
  - Breast swelling [Unknown]
  - Constipation [Unknown]

NARRATIVE: CASE EVENT DATE: 20190919
